FAERS Safety Report 4949337-8 (Version None)
Quarter: 2006Q1

REPORT INFORMATION
  Report Type: 
  Country: None (occurrence: None)
  Receive Date: 20060316
  Receipt Date: 20060313
  Transmission Date: 20060701
  Serious: Yes (Hospitalization)
  Sender: FDA-Public Use
  Company Number: 2006BI002388

PATIENT
  Age: 32 Year
  Sex: Female

DRUGS (8)
  1. AVONEX [Suspect]
     Indication: MULTIPLE SCLEROSIS
     Dates: start: 20030320
  2. AVONEX [Suspect]
     Indication: MULTIPLE SCLEROSIS
     Dosage: 30 UG; QW; IM
     Route: 030
  3. ALPRAZOLAM [Concomitant]
  4. METFORMIN [Concomitant]
  5. PHENTERMINE [Concomitant]
  6. AZITHROMYCIN [Concomitant]
  7. BIOHIST [Concomitant]
  8. LIDOCAINE/PRILOCAINE [Concomitant]

REACTIONS (1)
  - CHOLELITHIASIS [None]
